FAERS Safety Report 7676139-4 (Version None)
Quarter: 2011Q3

REPORT INFORMATION
  Report Type: 
  Country: None (occurrence: None)
  Receive Date: 20110811
  Receipt Date: 20110801
  Transmission Date: 20111222
  Serious: Yes (Hospitalization)
  Sender: FDA-Public Use
  Company Number: US-JNJFOC-20100906822

PATIENT
  Sex: Male
  Weight: 25.4 kg

DRUGS (4)
  1. INFLIXIMAB, RECOMBINANT [Suspect]
     Dosage: TOTAL 20 DOSES
     Route: 042
     Dates: start: 20090709
  2. FLAGYL [Concomitant]
  3. PREDNISONE [Concomitant]
  4. INFLIXIMAB, RECOMBINANT [Suspect]
     Indication: ANORECTAL DISORDER
     Route: 042
     Dates: start: 20070112

REACTIONS (1)
  - CROHN'S DISEASE [None]
